FAERS Safety Report 21372716 (Version 4)
Quarter: 2023Q4

REPORT INFORMATION
  Report Type: Report from Study
  Country: DE (occurrence: None)
  Receive Date: 20220924
  Receipt Date: 20231016
  Transmission Date: 20240109
  Serious: Yes (Hospitalization)
  Sender: FDA-Public Use
  Company Number: DE-ROCHE-3183662

PATIENT
  Age: 73 Year
  Sex: Female
  Weight: 60 kg

DRUGS (41)
  1. ATEZOLIZUMAB [Suspect]
     Active Substance: ATEZOLIZUMAB
     Indication: Triple negative breast cancer
     Dosage: LAST ADMINISTERED ON : 11/AUG/2022
     Route: 041
     Dates: start: 20220317
  2. PACLITAXEL [Suspect]
     Active Substance: PACLITAXEL
     Indication: Triple negative breast cancer
     Dosage: DATE OF LAST DOSE PRIOR TO SAE: 22/JUN/2022
     Route: 042
     Dates: start: 20220317
  3. CARBOPLATIN [Suspect]
     Active Substance: CARBOPLATIN
     Indication: Triple negative breast cancer
     Dosage: DATE OF LAST DOSE PRIOR TO SAE: 22/JUN/2022
     Route: 042
     Dates: start: 20220317
  4. EPIRUBICIN [Suspect]
     Active Substance: EPIRUBICIN
     Indication: Triple negative breast cancer
     Dosage: DATE OF LAST DOSE PRIOR TO SAE: 11/AUG/2022
     Route: 042
     Dates: start: 20220630
  5. CYCLOPHOSPHAMIDE [Suspect]
     Active Substance: CYCLOPHOSPHAMIDE
     Indication: Triple negative breast cancer
     Dosage: DATE OF LAST DOSE PRIOR TO SAE: 11/AUG/2022
     Route: 042
     Dates: start: 20220630
  6. ATORVASTATIN CALCIUM\EZETIMIBE [Concomitant]
     Active Substance: ATORVASTATIN CALCIUM\EZETIMIBE
     Dosage: 10/80 MG ONCE DAILY
  7. CHOLECALCIFEROL [Concomitant]
     Active Substance: CHOLECALCIFEROL
     Dosage: 20000 IU ONCE DAILY
     Dates: start: 20220314, end: 20220328
  8. CHOLECALCIFEROL [Concomitant]
     Active Substance: CHOLECALCIFEROL
     Dosage: 20000 IU OTHER
     Dates: start: 20220329
  9. ONDANSETRON [Concomitant]
     Active Substance: ONDANSETRON
     Dosage: 4 MG AS NEEDED
     Dates: start: 20220317
  10. METOCLOPRAMIDE [Concomitant]
     Active Substance: METOCLOPRAMIDE
     Dosage: 10 MG AS NEEDED
     Dates: start: 20220317
  11. APREPITANT [Concomitant]
     Active Substance: APREPITANT
     Dosage: 80 MG AS NEEDED
     Dates: start: 20220317
  12. GRANISETRONE [Concomitant]
     Dosage: 1 MG WEEKLY
     Dates: start: 20220317
  13. DEXAMETHASONE [Concomitant]
     Active Substance: DEXAMETHASONE
     Dates: start: 20220317, end: 20220519
  14. DEXAMETHASONE [Concomitant]
     Active Substance: DEXAMETHASONE
     Dosage: 2 MG OTHER
     Dates: start: 20220525, end: 20220622
  15. DEXAMETHASONE [Concomitant]
     Active Substance: DEXAMETHASONE
     Dosage: 8 MG OTHER
     Dates: start: 20220630
  16. CLEMASTINE [Concomitant]
     Active Substance: CLEMASTINE
     Dosage: 2 MG OTHER
     Dates: start: 20220317, end: 20220622
  17. PANTOPRAZOLE SODIUM [Concomitant]
     Active Substance: PANTOPRAZOLE SODIUM
     Dosage: 40 MG OTHER
     Dates: start: 20220317
  18. NADROPARIN [Concomitant]
     Active Substance: NADROPARIN
     Dosage: 3850 IU ONCE DAILY
     Dates: start: 20220408, end: 20220413
  19. NADROPARIN [Concomitant]
     Active Substance: NADROPARIN
     Dosage: 2850 IU ONCE DAILY
     Dates: start: 20220820, end: 20220822
  20. POTASSIUM CHLORIDE [Concomitant]
     Active Substance: POTASSIUM CHLORIDE
     Dosage: 40 MMOL AS NEEDED
     Dates: start: 20220409, end: 20220413
  21. ASPIRIN [Concomitant]
     Active Substance: ASPIRIN
     Dosage: 100 MG ONCE DAILY
     Dates: start: 20220409, end: 20220412
  22. ASPIRIN [Concomitant]
     Active Substance: ASPIRIN
     Dosage: 100 MG ONCE DAILY
     Dates: end: 202202
  23. CEFTRIAXONE [Concomitant]
     Active Substance: CEFTRIAXONE\CEFTRIAXONE SODIUM
     Dosage: 2 G ONCE DAILY
     Dates: start: 20220408, end: 20220413
  24. CEFTRIAXONE [Concomitant]
     Active Substance: CEFTRIAXONE\CEFTRIAXONE SODIUM
     Dosage: 2 G ONCE DAILY
     Dates: start: 20220821, end: 20220823
  25. CLARITHROMYCIN [Concomitant]
     Active Substance: CLARITHROMYCIN
     Dosage: 500 MG TWICE DAILY
     Dates: start: 20220408, end: 20220413
  26. CLARITHROMYCIN [Concomitant]
     Active Substance: CLARITHROMYCIN
     Dosage: 500 MG TWICE DAILY
     Dates: start: 20220820, end: 20220823
  27. ACETAMINOPHEN [Concomitant]
     Active Substance: ACETAMINOPHEN
     Dosage: 1 G AS NEEDED
     Dates: start: 20220408, end: 20220413
  28. DIMENHYDRINATE [Concomitant]
     Active Substance: DIMENHYDRINATE
     Dosage: 62 MG AS NEEDED
     Dates: start: 20220410, end: 20220413
  29. LOPERAMIDE [Concomitant]
     Active Substance: LOPERAMIDE
     Dosage: 2 MG AS NEEDED
     Dates: start: 20220410
  30. TRIAMCINOLON [Concomitant]
     Dosage: 10 MG AS NEEDED
     Dates: start: 20211213, end: 20211222
  31. ROPIVACAINE [Concomitant]
     Active Substance: ROPIVACAINE
     Dosage: 2 MG AS NEEDED
     Dates: start: 20211213, end: 20211222
  32. DICLOFENAC [Concomitant]
     Active Substance: DICLOFENAC
     Dosage: 50 MG AS NEEDED
     Dates: start: 20220407, end: 20220414
  33. DIMETHINDENE [Concomitant]
     Active Substance: DIMETHINDENE
     Dosage: AS NEEDED
     Dates: start: 20220407
  34. DEXPANTHENOL [Concomitant]
     Active Substance: DEXPANTHENOL
     Dosage: AS NEEDED
     Dates: start: 20220414, end: 20220519
  35. DEUMAVAN [Concomitant]
     Dosage: AS NEEDED
     Dates: start: 20220422, end: 20220519
  36. IBUPROFEN [Concomitant]
     Active Substance: IBUPROFEN
     Dosage: 600 MG AS NEEDED
     Dates: start: 20220519
  37. METAMIZOL [Concomitant]
     Active Substance: METAMIZOLE SODIUM
     Dosage: 500 MG AS NEEDED
     Dates: start: 20220519
  38. EPIRUBICIN [Concomitant]
     Active Substance: EPIRUBICIN
     Dosage: 90 MG/BSA M SQUARE OTHER
     Dates: start: 20220519, end: 20220615
  39. CYCLOPHOSPHAMIDE [Concomitant]
     Active Substance: CYCLOPHOSPHAMIDE
     Dosage: 600 / BSA M SQUARE  MG OTHER
     Dates: start: 20220519, end: 20220615
  40. PEGFILGRASTIM [Concomitant]
     Active Substance: PEGFILGRASTIM
     Dates: start: 20220701, end: 20220812
  41. CEFUROXIME [Concomitant]
     Active Substance: CEFUROXIME
     Dates: start: 20220704, end: 20220822

REACTIONS (2)
  - Urinary tract infection [Recovered/Resolved with Sequelae]
  - Atypical pneumonia [Recovered/Resolved with Sequelae]

NARRATIVE: CASE EVENT DATE: 20220820
